FAERS Safety Report 9102316 (Version 1)
Quarter: 2013Q1

REPORT INFORMATION
  Report Type: Report from Study
  Country: US (occurrence: US)
  Receive Date: 20130219
  Receipt Date: 20130219
  Transmission Date: 20140127
  Serious: Yes (Hospitalization)
  Sender: FDA-Public Use
  Company Number: US-ABBOTT-13P-163-1049310-00

PATIENT
  Sex: Female

DRUGS (3)
  1. HUMIRA [Suspect]
     Indication: CROHN^S DISEASE
     Route: 058
     Dates: start: 200909
  2. MAGNESIUM CITRATE [Suspect]
     Indication: COLONOSCOPY
     Dosage: TWO BOTTLES
     Dates: start: 201302, end: 201302
  3. MAGNESIUM CITRATE [Suspect]
     Indication: BOWEL PREPARATION

REACTIONS (2)
  - Blood glucose increased [Recovered/Resolved]
  - Disorientation [Recovered/Resolved]
